FAERS Safety Report 7758021-7 (Version None)
Quarter: 2011Q3

REPORT INFORMATION
  Report Type: 
  Country: None (occurrence: None)
  Receive Date: 20110919
  Receipt Date: 20110914
  Transmission Date: 20111222
  Serious: No
  Sender: FDA-Public Use
  Company Number: US-BIOGENIDEC-2011BI028335

PATIENT
  Sex: Female

DRUGS (4)
  1. TYSABRI [Suspect]
     Route: 042
     Dates: start: 20110801
  2. AVONEX [Concomitant]
     Indication: MULTIPLE SCLEROSIS
     Route: 030
     Dates: start: 20021019
  3. TYSABRI [Suspect]
     Indication: MULTIPLE SCLEROSIS
     Route: 042
     Dates: start: 20100416, end: 20110119
  4. TYSABRI [Suspect]
     Route: 042
     Dates: start: 20070824, end: 20091222

REACTIONS (7)
  - FAECAL INCONTINENCE [None]
  - GAIT DISTURBANCE [None]
  - PALPITATIONS [None]
  - FATIGUE [None]
  - URINARY INCONTINENCE [None]
  - PARAESTHESIA [None]
  - MULTIPLE SCLEROSIS [None]
